FAERS Safety Report 6755293-2 (Version None)
Quarter: 2010Q2

REPORT INFORMATION
  Report Type: 
  Country: None (occurrence: None)
  Receive Date: 20100602
  Receipt Date: 20100524
  Transmission Date: 20101027
  Serious: Yes (Hospitalization)
  Sender: FDA-Public Use
  Company Number: 2009-03903

PATIENT
  Age: 72 Year
  Sex: Male
  Weight: 92 kg

DRUGS (3)
  1. VELCADE [Suspect]
     Indication: MULTIPLE MYELOMA
     Dosage: 2 MG, INTRAVENOUS
     Route: 042
     Dates: start: 20090915, end: 20090922
  2. DEXAMETHASONE TAB [Suspect]
     Indication: MULTIPLE MYELOMA
     Dosage: 20 MG, ORAL
     Route: 048
     Dates: start: 20090915
  3. DOXORUBICIN HCL [Suspect]
     Indication: MULTIPLE MYELOMA
     Dosage: 30 MG, INTRAVENOUS
     Route: 042
     Dates: start: 20090915, end: 20090918

REACTIONS (7)
  - APHTHOUS STOMATITIS [None]
  - AUTONOMIC NEUROPATHY [None]
  - DEHYDRATION [None]
  - DIARRHOEA [None]
  - FAECAL INCONTINENCE [None]
  - LOWER RESPIRATORY TRACT INFECTION [None]
  - SYNCOPE [None]
